FAERS Safety Report 19474449 (Version 2)
Quarter: 2021Q3

REPORT INFORMATION
  Report Type: Report from Study
  Country: CN (occurrence: CN)
  Receive Date: 20210629
  Receipt Date: 20210720
  Transmission Date: 20211014
  Serious: Yes (Other)
  Sender: FDA-Public Use
  Company Number: NVSC2021CN142081

PATIENT
  Age: 40 Year
  Sex: Female

DRUGS (2)
  1. ZYKADIA [Suspect]
     Active Substance: CERITINIB
     Indication: NON-SMALL CELL LUNG CANCER
     Dosage: 450 MG, QD (STOP DATE AROUND THE MIDDLE OF JUN 2021)
     Route: 048
     Dates: start: 20190406, end: 202106
  2. ZYKADIA [Suspect]
     Active Substance: CERITINIB
     Dosage: 750 MG, QD ( START DATE AROUND THE MIDDLE OF JUN 2021)
     Route: 048
     Dates: start: 202106

REACTIONS (1)
  - Metastases to central nervous system [Recovering/Resolving]

NARRATIVE: CASE EVENT DATE: 20210616
